FAERS Safety Report 6308471-0 (Version None)
Quarter: 2009Q3

REPORT INFORMATION
  Report Type: 
  Country: None (occurrence: None)
  Receive Date: 20090813
  Receipt Date: 20090810
  Transmission Date: 20100115
  Serious: Yes (Death)
  Sender: FDA-Public Use
  Company Number: PHHY2009AR33514

PATIENT
  Sex: Female

DRUGS (1)
  1. EXELON [Suspect]
     Dosage: 1 PATCH DAILY
     Dates: start: 20090201, end: 20090701

REACTIONS (1)
  - CEREBROVASCULAR ACCIDENT [None]
